FAERS Safety Report 12498201 (Version 1)
Quarter: 2016Q2

REPORT INFORMATION
  Report Type: Spontaneous
  Country: US (occurrence: US)
  Receive Date: 20160627
  Receipt Date: 20160627
  Transmission Date: 20160815
  Serious: No
  Sender: FDA-Public Use
  Company Number: US-009507513-1606USA011819

PATIENT
  Age: 16 Year
  Sex: Male

DRUGS (1)
  1. GRASTEK [Suspect]
     Active Substance: PHLEUM PRATENSE POLLEN
     Indication: ANTIALLERGIC THERAPY
     Dosage: 2800 BAU^S, FREQUENCY UNKNOWN
     Route: 048
     Dates: start: 20160210, end: 2016

REACTIONS (1)
  - Drug ineffective [Unknown]

NARRATIVE: CASE EVENT DATE: 2016
